FAERS Safety Report 6921090-8 (Version None)
Quarter: 2010Q3

REPORT INFORMATION
  Report Type: 
  Country: None (occurrence: None)
  Receive Date: 20100804
  Receipt Date: 20090806
  Transmission Date: 20110219
  Serious: No
  Sender: FDA-Public Use
  Company Number: 2009-1828

PATIENT
  Age: 63 Year
  Sex: Male
  Weight: 94 kg

DRUGS (7)
  1. SOMATULINE DEPOT [Suspect]
     Indication: BLOOD GROWTH HORMONE INCREASED
     Dosage: (120 MG, 1 IN 1 M), SUBCUTANEOUS
     Route: 058
     Dates: start: 20080911
  2. DESMOPRESSIN ACETATE [Concomitant]
  3. LEVOXYL [Concomitant]
  4. HYDROCORTONE [Concomitant]
  5. BROMOCRIPTINE (BROMOCRIPTIN) [Concomitant]
  6. ANDRODERM [Concomitant]
  7. VITAMIN D [Concomitant]

REACTIONS (1)
  - INJECTION SITE PAIN [None]
